FAERS Safety Report 6060095-9 (Version None)
Quarter: 2009Q1

REPORT INFORMATION
  Report Type: 
  Country: None (occurrence: None)
  Receive Date: 20090127
  Receipt Date: 20090115
  Transmission Date: 20090719
  Serious: No
  Sender: FDA-Public Use
  Company Number: 2009-189710-NL

PATIENT
  Age: 39 Year
  Sex: Female

DRUGS (1)
  1. MIRTAZAPINE [Suspect]
     Dosage: 60 MG ORAL
     Route: 048
     Dates: start: 20080101

REACTIONS (1)
  - ELECTROCARDIOGRAM T WAVE INVERSION [None]
